FAERS Safety Report 11821509 (Version 2)
Quarter: 2016Q1

REPORT INFORMATION
  Report Type: Spontaneous
  Country: US (occurrence: US)
  Receive Date: 20151210
  Receipt Date: 20160202
  Transmission Date: 20160525
  Serious: No
  Sender: FDA-Public Use
  Company Number: US-JNJFOC-20150419002

PATIENT
  Age: 85 Year
  Sex: Female

DRUGS (4)
  1. IMBRUVICA [Suspect]
     Active Substance: IBRUTINIB
     Indication: CHRONIC LYMPHOCYTIC LEUKAEMIA
     Route: 048
     Dates: start: 20141023
  2. AMIODARONE [Concomitant]
     Active Substance: AMIODARONE
  3. TYLENOL [Concomitant]
     Active Substance: ACETAMINOPHEN
  4. XANAX [Concomitant]
     Active Substance: ALPRAZOLAM

REACTIONS (6)
  - Multiple allergies [Unknown]
  - Contusion [Not Recovered/Not Resolved]
  - Rash pruritic [Unknown]
  - Skin discolouration [Unknown]
  - Headache [Not Recovered/Not Resolved]
  - Incorrect dose administered [Not Recovered/Not Resolved]

NARRATIVE: CASE EVENT DATE: 20141023
